FAERS Safety Report 8561662-0 (Version None)
Quarter: 2012Q3

REPORT INFORMATION
  Report Type: 
  Country: None (occurrence: None)
  Receive Date: 20120727
  Receipt Date: 20120727
  Transmission Date: 20120928
  Serious: Yes (Life-Threatening, Hospitalization)
  Sender: FDA-Public Use
  Company Number: None

PATIENT
  Age: 40 Year
  Sex: Female

DRUGS (2)
  1. VIIBRYD [Suspect]
     Indication: DEPRESSION
     Dosage: ACUTE ON CHRONIC PO
     Route: 048
  2. SEROQUEL [Suspect]
     Dosage: ACUTE ON CHRONIC PO
     Route: 048

REACTIONS (4)
  - CONVULSION [None]
  - PARKINSONIAN REST TREMOR [None]
  - DISORIENTATION [None]
  - SPEECH DISORDER [None]
